FAERS Safety Report 13736676 (Version 1)
Quarter: 2017Q3

REPORT INFORMATION
  Report Type: Spontaneous
  Country: None (occurrence: US)
  Receive Date: 20170710
  Receipt Date: 20170710
  Transmission Date: 20171127
  Serious: No
  Sender: FDA-Public Use
  Company Number: None

PATIENT
  Age: 49 Year
  Sex: Female

DRUGS (1)
  1. CYCLOSPORINE. [Suspect]
     Active Substance: CYCLOSPORINE
     Indication: IDIOPATHIC URTICARIA
     Route: 048
     Dates: start: 20170607, end: 20170707

REACTIONS (5)
  - Hot flush [None]
  - Ocular hyperaemia [None]
  - Fatigue [None]
  - Nausea [None]
  - Hypersensitivity [None]
